FAERS Safety Report 6444228-8 (Version None)
Quarter: 2009Q4

REPORT INFORMATION
  Report Type: 
  Country: None (occurrence: None)
  Receive Date: 20091118
  Receipt Date: 20081119
  Transmission Date: 20100525
  Serious: Yes (Death, Other)
  Sender: FDA-Public Use
  Company Number: CN-BAYER-200830808GPV

PATIENT
  Age: 28 Year
  Sex: Male

DRUGS (2)
  1. NEXAVAR [Suspect]
     Indication: RENAL CELL CARCINOMA
     Dosage: TOTAL DAILY DOSE: 800 MG
     Route: 048
     Dates: start: 20080512
  2. INTRON A [Concomitant]
     Indication: RENAL CELL CARCINOMA
     Route: 058
     Dates: start: 20080512

REACTIONS (2)
  - BLOOD DISORDER [None]
  - VOMITING [None]
